FAERS Safety Report 6723626-9 (Version None)
Quarter: 2010Q2

REPORT INFORMATION
  Report Type: 
  Country: None (occurrence: None)
  Receive Date: 20100513
  Receipt Date: 20100430
  Transmission Date: 20101027
  Serious: Yes (Hospitalization)
  Sender: FDA-Public Use
  Company Number: US-WATSON-2010-06306

PATIENT
  Age: 19 Year
  Sex: Female
  Weight: 70 kg

DRUGS (2)
  1. FENTANYL CITRATE [Suspect]
     Indication: INDUCTION OF ANAESTHESIA
     Dosage: 100 MCG, UNK
     Route: 042
  2. PROPOFOL [Suspect]
     Indication: INDUCTION OF ANAESTHESIA
     Dosage: 150 MG, UNK
     Route: 042

REACTIONS (3)
  - CARDIAC FAILURE [None]
  - CARDIOGENIC SHOCK [None]
  - MYOCARDIAL INFARCTION [None]
